FAERS Safety Report 4748636-2 (Version None)
Quarter: 2005Q3

REPORT INFORMATION
  Report Type: 
  Country: None (occurrence: None)
  Receive Date: 20050817
  Receipt Date: 20050801
  Transmission Date: 20060218
  Serious: Yes (Other)
  Sender: FDA-Public Use
  Company Number: PHEH2005US08490

PATIENT
  Age: 73 Year
  Sex: Female

DRUGS (1)
  1. VISUDYNE [Suspect]
     Indication: MACULAR DEGENERATION
     Dates: start: 20040101, end: 20040101

REACTIONS (5)
  - BLEPHARITIS [None]
  - BLINDNESS UNILATERAL [None]
  - CONJUNCTIVITIS [None]
  - DRY EYE [None]
  - VISUAL ACUITY REDUCED [None]
